FAERS Safety Report 7532221-3 (Version None)
Quarter: 2011Q2

REPORT INFORMATION
  Report Type: 
  Country: None (occurrence: None)
  Receive Date: 20110608
  Receipt Date: 20110606
  Transmission Date: 20111010
  Serious: Yes (Hospitalization, Other)
  Sender: FDA-Public Use
  Company Number: US-PFIZER INC-2011122528

PATIENT
  Sex: Female
  Weight: 61.224 kg

DRUGS (7)
  1. SYNTHROID [Concomitant]
     Indication: THYROIDECTOMY
     Dosage: UNK
     Route: 048
  2. TYLENOL-500 [Concomitant]
     Indication: PAIN
     Dosage: UNK
     Route: 048
  3. NORVASC [Suspect]
     Indication: CEREBROVASCULAR ACCIDENT
     Dosage: 10 MG, DAILY
     Route: 048
     Dates: start: 20110101
  4. METOPROLOL [Concomitant]
     Indication: BLOOD PRESSURE ABNORMAL
     Dosage: 50 MG, UNK
  5. ATIVAN [Concomitant]
     Indication: ANXIETY
     Dosage: UNK
     Route: 048
     Dates: start: 20110101
  6. VALSARTAN [Concomitant]
     Indication: BLOOD PRESSURE ABNORMAL
     Dosage: UNK
     Route: 048
  7. NORVASC [Suspect]
     Indication: MYOCARDIAL INFARCTION

REACTIONS (4)
  - HEART RATE DECREASED [None]
  - OBSTRUCTIVE UROPATHY [None]
  - MUSCULOSKELETAL PAIN [None]
  - PAIN IN EXTREMITY [None]
